FAERS Safety Report 13742553 (Version 1)
Quarter: 2017Q3

REPORT INFORMATION
  Report Type: Spontaneous
  Country: US (occurrence: US)
  Receive Date: 20170711
  Receipt Date: 20170711
  Transmission Date: 20171127
  Serious: Yes (Other)
  Sender: FDA-Public Use
  Company Number: US-SAOL THERAPEUTICS-2016SAO01251

PATIENT
  Age: 25 Year
  Sex: Male
  Weight: 61.22 kg

DRUGS (13)
  1. LIORESAL [Suspect]
     Active Substance: BACLOFEN
     Indication: SPINAL CORD INJURY
     Dosage: 445.8 ?G, \DAY
     Route: 037
     Dates: start: 20090910
  2. DANTROLINE [Concomitant]
     Active Substance: DANTROLENE
  3. LIORESAL [Suspect]
     Active Substance: BACLOFEN
     Indication: MUSCLE SPASTICITY
     Dosage: 227 ?G, \DAY
     Route: 037
     Dates: start: 20090910
  4. ^MAGIC BULLET SUP (BISAOCODYL)^ [Concomitant]
  5. COLACE [Concomitant]
     Active Substance: DOCUSATE SODIUM
  6. DOXYCYCLINE. [Concomitant]
     Active Substance: DOXYCYCLINE
  7. OXYBUTYNIN [Concomitant]
     Active Substance: OXYBUTYNIN
  8. NEXIUM [Concomitant]
     Active Substance: ESOMEPRAZOLE MAGNESIUM
  9. PROBIOTIC CAPS [Concomitant]
  10. CRANBERRY PROBIOTIC [Concomitant]
  11. VITAMIN C [Concomitant]
     Active Substance: ASCORBIC ACID
  12. FIBER CAPS [Concomitant]
     Active Substance: CALCIUM POLYCARBOPHIL
  13. BACLOFEN. [Concomitant]
     Active Substance: BACLOFEN
     Route: 048

REACTIONS (3)
  - Muscle spasms [Unknown]
  - Therapy non-responder [Unknown]
  - Haemorrhoids [Unknown]

NARRATIVE: CASE EVENT DATE: 20160226
